FAERS Safety Report 13008966 (Version 1)
Quarter: 2016Q4

REPORT INFORMATION
  Report Type: Spontaneous
  Country: FR (occurrence: FR)
  Receive Date: 20161208
  Receipt Date: 20161208
  Transmission Date: 20170207
  Serious: Yes (Hospitalization)
  Sender: FDA-Public Use
  Company Number: FR-SA-2016SA220884

PATIENT
  Age: 82 Year
  Sex: Female

DRUGS (14)
  1. LASILIX [Concomitant]
     Active Substance: FUROSEMIDE
     Dates: start: 20161107
  2. DIFFU K [Concomitant]
     Active Substance: POTASSIUM CHLORIDE
     Dosage: DOSE: 1-2-1
  3. ATARAX [Concomitant]
     Active Substance: HYDROXYZINE\HYDROXYZINE HYDROCHLORIDE
     Dosage: DOSE: 0-0-1
  4. PROPYLEX [Concomitant]
     Active Substance: PROPYLENE GLYCOL
     Dosage: DOSE: 1-2-1
  5. LASILIX [Concomitant]
     Active Substance: FUROSEMIDE
     Dosage: DOSE:0.25-0-0
     Dates: end: 20161102
  6. ZOCOR [Concomitant]
     Active Substance: SIMVASTATIN
     Dosage: DOSE: 0-0-1
  7. CORDARONE [Concomitant]
     Active Substance: AMIODARONE HYDROCHLORIDE
     Dosage: DOSE: 1-0-0
  8. XARELTO [Suspect]
     Active Substance: RIVAROXABAN
     Indication: ATRIAL FIBRILLATION
     Route: 048
     Dates: end: 20161102
  9. AERIUS [Concomitant]
     Active Substance: DESLORATADINE
     Dosage: DOSE: 0-0-1
  10. PLAVIX [Suspect]
     Active Substance: CLOPIDOGREL BISULFATE
     Indication: ATRIAL FIBRILLATION
     Route: 048
     Dates: end: 20161102
  11. ESIDREX [Concomitant]
     Active Substance: HYDROCHLOROTHIAZIDE
     Dosage: DOSE: 1-0-0
  12. ALLOPURINOL. [Concomitant]
     Active Substance: ALLOPURINOL
     Dosage: DOSE: 0-0-1
  13. TEMERIT [Concomitant]
     Active Substance: NEBIVOLOL
     Dosage: DOSE: 1-0-0
  14. NOVOMIX [Concomitant]
     Active Substance: INSULIN ASPART
     Dosage: DOSE: 0-0-40

REACTIONS (1)
  - Thrombocytopenia [Recovered/Resolved]

NARRATIVE: CASE EVENT DATE: 20161101
